FAERS Safety Report 9745446 (Version 2)
Quarter: 2013Q4

REPORT INFORMATION
  Report Type: Spontaneous
  Country: BR (occurrence: BR)
  Receive Date: 20131211
  Receipt Date: 20131211
  Transmission Date: 20140711
  Serious: Yes (Other)
  Sender: FDA-Public Use
  Company Number: BR-PFIZER INC-2013226073

PATIENT
  Age: 51 Year
  Sex: Male
  Weight: 106 kg

DRUGS (5)
  1. LYRICA [Suspect]
     Indication: POLYNEUROPATHY
     Dosage: 150 MG, 1X/DAY
     Dates: start: 201306, end: 20130731
  2. LYRICA [Suspect]
     Dosage: 150 MG, 2X/DAY
     Dates: start: 20130801
  3. VENLAFAXINE HCL [Suspect]
     Dosage: UNK
     Dates: start: 201310
  4. GABAPENTIN [Suspect]
     Dosage: UNK
     Dates: start: 2013
  5. MORPHINE [Suspect]
     Indication: POLYNEUROPATHY
     Dosage: 160 MG, UNK

REACTIONS (10)
  - Suicidal ideation [Unknown]
  - Self injurious behaviour [Unknown]
  - Blood pressure abnormal [Unknown]
  - Pain [Unknown]
  - Insomnia [Unknown]
  - Weight increased [Not Recovered/Not Resolved]
  - Increased appetite [Not Recovered/Not Resolved]
  - Drug ineffective [Not Recovered/Not Resolved]
  - Somnolence [Unknown]
  - Feeling abnormal [Unknown]
